FAERS Safety Report 6288096-6 (Version None)
Quarter: 2009Q3

REPORT INFORMATION
  Report Type: 
  Country: None (occurrence: None)
  Receive Date: 20090729
  Receipt Date: 20081124
  Transmission Date: 20100115
  Serious: No
  Sender: FDA-Public Use
  Company Number: A0738188A

PATIENT
  Age: 20 Year
  Sex: Female

DRUGS (3)
  1. ZANTAC [Suspect]
     Dosage: 150MG TWICE PER DAY
     Route: 048
     Dates: start: 20080707
  2. WELLBUTRIN SR [Concomitant]
  3. PERIACTIN [Concomitant]
     Dosage: 4MGM UNKNOWN

REACTIONS (1)
  - DRUG SCREEN POSITIVE [None]
